FAERS Safety Report 6845168-2 (Version None)
Quarter: 2010Q3

REPORT INFORMATION
  Report Type: 
  Country: None (occurrence: None)
  Receive Date: 20100715
  Receipt Date: 20070817
  Transmission Date: 20110219
  Serious: No
  Sender: FDA-Public Use
  Company Number: US-PFIZER INC-2007069675

PATIENT
  Sex: Female
  Weight: 63.5 kg

DRUGS (4)
  1. CHANTIX [Suspect]
     Indication: SMOKING CESSATION THERAPY
     Dates: start: 20070801
  2. OTHER ANTIDIARRHOEALS [Concomitant]
     Indication: IRRITABLE BOWEL SYNDROME
  3. CYMBALTA [Concomitant]
     Indication: DEPRESSION
  4. ANTIHYPERTENSIVES [Concomitant]
     Indication: HYPERTENSION

REACTIONS (2)
  - NAUSEA [None]
  - VOMITING [None]
